FAERS Safety Report 9322874 (Version 2)
Quarter: 2013Q2

REPORT INFORMATION
  Report Type: Spontaneous
  Country: RU (occurrence: RU)
  Receive Date: 20130602
  Receipt Date: 20130625
  Transmission Date: 20140414
  Serious: Yes (Other)
  Sender: FDA-Public Use
  Company Number: PHHY2013RU055246

PATIENT
  Age: 51 Year
  Sex: Male

DRUGS (2)
  1. CO-EXFORGE [Suspect]
     Indication: ESSENTIAL HYPERTENSION
     Dosage: 1 DF, IN THE MORNING
     Route: 048
     Dates: start: 20100101
  2. ATORVASTATIN [Concomitant]
     Indication: HYPERCHOLESTEROLAEMIA
     Dosage: 1 DF, UNK
     Route: 048
     Dates: start: 20100101

REACTIONS (3)
  - Calculus urinary [Unknown]
  - Renal colic [Recovering/Resolving]
  - Concomitant disease aggravated [Unknown]
